FAERS Safety Report 5019501-0 (Version None)
Quarter: 2006Q2

REPORT INFORMATION
  Report Type: 
  Country: None (occurrence: None)
  Receive Date: 20060605
  Receipt Date: 20060605
  Transmission Date: 20061013
  Serious: No
  Sender: FDA-Public Use
  Company Number: None

PATIENT
  Sex: Female
  Weight: 63.5036 kg

DRUGS (1)
  1. MORPHINE [Suspect]
     Indication: PAIN
     Dosage: 4 MG ONE TIME ONLY DOSE IM
     Route: 030
     Dates: start: 20060405, end: 20060405

REACTIONS (1)
  - PRURITUS [None]
